FAERS Safety Report 22085995 (Version 1)
Quarter: 2023Q1

REPORT INFORMATION
  Report Type: Spontaneous
  Country: US (occurrence: None)
  Receive Date: 20230310
  Receipt Date: 20230310
  Transmission Date: 20230417
  Serious: Yes (Death)
  Sender: FDA-Public Use
  Company Number: None

PATIENT
  Age: 69 Year
  Sex: Female

DRUGS (9)
  1. REPATHA [Suspect]
     Active Substance: EVOLOCUMAB
     Indication: Hypercholesterolaemia
     Dosage: 140MG Q2WKS SUBCUTANEOUS?
     Route: 058
     Dates: end: 20230307
  2. ADVIL 200MG CAPSULES [Concomitant]
  3. BACTRIM DS (800-160MG) TABLETS [Concomitant]
  4. DILTIAZEM 120MG TABLETS [Concomitant]
  5. JANUMET 50/1000MG TABLETS [Concomitant]
  6. LOSARTAN POTASSIUM [Concomitant]
     Active Substance: LOSARTAN POTASSIUM
  7. PREDNISONE [Concomitant]
     Active Substance: PREDNISONE
  8. PREDNISONE 2.5MG TABLETS [Concomitant]
  9. REPAGLINIDE 2MG TABLETS [Concomitant]

REACTIONS (1)
  - Back pain [None]

NARRATIVE: CASE EVENT DATE: 20230307
